FAERS Safety Report 20098956 (Version 1)
Quarter: 2021Q4

REPORT INFORMATION
  Report Type: Spontaneous
  Country: DE (occurrence: DE)
  Receive Date: 20211122
  Receipt Date: 20211122
  Transmission Date: 20220303
  Serious: Yes (Death, Hospitalization, Other)
  Sender: FDA-Public Use
  Company Number: DE-ABBVIE-21K-062-4169373-00

PATIENT
  Age: 6 Year
  Sex: Male

DRUGS (3)
  1. VALPROIC ACID [Suspect]
     Active Substance: VALPROIC ACID
     Indication: Generalised tonic-clonic seizure
     Route: 065
  2. VALPROIC ACID [Suspect]
     Active Substance: VALPROIC ACID
     Indication: Drop attacks
  3. PHENOBARBITAL [Concomitant]
     Active Substance: PHENOBARBITAL
     Indication: Product used for unknown indication

REACTIONS (7)
  - Hepatic failure [Fatal]
  - Shock [Unknown]
  - Haematuria [Unknown]
  - Proteinuria [Unknown]
  - Reye^s syndrome [Unknown]
  - Partial seizures [Unknown]
  - Coma [Unknown]
